FAERS Safety Report 6773328-8 (Version None)
Quarter: 2010Q2

REPORT INFORMATION
  Report Type: 
  Country: None (occurrence: None)
  Receive Date: 20100616
  Receipt Date: 20100409
  Transmission Date: 20101027
  Serious: No
  Sender: FDA-Public Use
  Company Number: US-ABBOTT-10P-163-0638377-00

PATIENT
  Sex: Female
  Weight: 99.88 kg

DRUGS (5)
  1. TRILIPIX [Suspect]
     Indication: BLOOD TRIGLYCERIDES INCREASED
     Dates: start: 20100404, end: 20100409
  2. TRILIPIX [Suspect]
     Dosage: EVERY NIGHT
  3. NIFEDIPINE [Concomitant]
     Indication: HYPERTENSION
  4. LESCOL [Concomitant]
     Indication: DRUG USE FOR UNKNOWN INDICATION
  5. LASIX [Concomitant]
     Indication: OEDEMA PERIPHERAL

REACTIONS (6)
  - ABDOMINAL PAIN UPPER [None]
  - DYSGEUSIA [None]
  - FLATULENCE [None]
  - MOBILITY DECREASED [None]
  - NAUSEA [None]
  - PAIN [None]
